FAERS Safety Report 7994984-2 (Version None)
Quarter: 2011Q4

REPORT INFORMATION
  Report Type: 
  Country: None (occurrence: None)
  Receive Date: 20111220
  Receipt Date: 20111130
  Transmission Date: 20120403
  Serious: No
  Sender: FDA-Public Use
  Company Number: US-MYLANLABS-2011S1024624

PATIENT
  Age: 89 Year
  Sex: Female

DRUGS (4)
  1. ATENOLOL [Concomitant]
     Indication: BLOOD PRESSURE
  2. PLAVIX [Concomitant]
  3. CARBIDOPA AND LEVODOPA [Suspect]
     Indication: PARKINSON'S DISEASE
     Route: 048
     Dates: start: 20090101, end: 20111129
  4. AMLODIPINE [Concomitant]

REACTIONS (3)
  - WRONG TECHNIQUE IN DRUG USAGE PROCESS [None]
  - INCORRECT ROUTE OF DRUG ADMINISTRATION [None]
  - DIARRHOEA [None]
